FAERS Safety Report 5273570-1 (Version None)
Quarter: 2007Q1

REPORT INFORMATION
  Report Type: 
  Country: None (occurrence: None)
  Receive Date: 20070320
  Receipt Date: 20070305
  Transmission Date: 20070707
  Serious: Yes (Hospitalization)
  Sender: FDA-Public Use
  Company Number: 15854

PATIENT
  Age: 82 Year
  Sex: Female

DRUGS (27)
  1. CYTARABINE [Suspect]
     Indication: ACUTE MYELOID LEUKAEMIA
     Dosage: 20 MG/M2 QD SC
     Route: 058
     Dates: start: 20061024, end: 20061121
  2. CYTARABINE [Suspect]
     Indication: ACUTE MYELOID LEUKAEMIA
     Dates: start: 20061121, end: 20061128
  3. ZOLOFT. MFR:  NOT SPECIFIED [Concomitant]
  4. VITAMIN B12 /00056201/ [Concomitant]
  5. OSTELIN [Concomitant]
  6. GABAPENTIN [Concomitant]
  7. MONOPRIL [Concomitant]
  8. MEGAFOL [Concomitant]
  9. LIPITOR /01326101/. MFR:  NOT SPECIFIED [Concomitant]
  10. FOSAMAX. MFR:  NOT SPECIFIED [Concomitant]
  11. BETAMIN /00056102/. MFR:  NOT SPECIFIED [Concomitant]
  12. BETAGAN. MFR:  NOT SPECIFIED [Concomitant]
  13. GLUCOSAMINE [Concomitant]
  14. MAGMIN [Concomitant]
  15. ALLOPURINOL [Concomitant]
  16. METAMUCIL /00029101/. MFR:  NOT SPECIFIED [Concomitant]
  17. IMODIUM /00384302/. MFR:  NOT SPECIFIED [Concomitant]
  18. NEXIUM. MFR:  NOT SPECIFIED [Concomitant]
  19. OXYCONTIN. MFR:  NOT SPECIFIED [Concomitant]
  20. PREDNISOLONE [Concomitant]
  21. RESONIUM. MFR:  NOT SPECIFIED [Concomitant]
  22. CALCIUM GLUCONATE [Concomitant]
  23. VANCOMYCIN [Concomitant]
  24. MEROPENEM [Concomitant]
  25. DIGOXIN [Concomitant]
  26. LASIX /00032601/. MFR:  NOT SPECIFIED [Concomitant]
  27. VITAMIN K [Concomitant]

REACTIONS (8)
  - ATRIAL FIBRILLATION [None]
  - CARDIOMEGALY [None]
  - COLLAPSE OF LUNG [None]
  - LUNG CONSOLIDATION [None]
  - PULMONARY CONGESTION [None]
  - PULMONARY OEDEMA [None]
  - RECTAL HAEMORRHAGE [None]
  - SEPSIS [None]
